FAERS Safety Report 9491330 (Version 1)
Quarter: 2013Q3

REPORT INFORMATION
  Report Type: Spontaneous
  Country: US (occurrence: US)
  Receive Date: 20130830
  Receipt Date: 20130830
  Transmission Date: 20140515
  Serious: Yes (Other)
  Sender: FDA-Public Use
  Company Number: US-BAYER-2013-104143

PATIENT
  Age: 54 Year
  Sex: Female
  Weight: 81.63 kg

DRUGS (4)
  1. ALEVE LIQUID GELS [Suspect]
     Dosage: 1 DF, PRN
     Route: 048
     Dates: start: 2000
  2. ALEVE GELCAPS [Suspect]
     Dosage: 1 DF, PRN
     Route: 048
     Dates: start: 2000
  3. OMEGA 3 FISH OIL [Concomitant]
  4. VITAMIN D [Concomitant]

REACTIONS (3)
  - Gastric haemorrhage [Recovered/Resolved]
  - Abdominal discomfort [Recovered/Resolved]
  - Therapeutic response delayed [None]
